FAERS Safety Report 7546416-6 (Version None)
Quarter: 2011Q2

REPORT INFORMATION
  Report Type: 
  Country: None (occurrence: None)
  Receive Date: 20110614
  Receipt Date: 20110609
  Transmission Date: 20111010
  Serious: Yes (Life-Threatening, Hospitalization)
  Sender: FDA-Public Use
  Company Number: CU-ASTRAZENECA-2011SE30267

PATIENT
  Age: 49 Year
  Sex: Male
  Weight: 68 kg

DRUGS (6)
  1. SEROQUEL [Suspect]
     Dosage: 10 TABLETS 200 MG
     Route: 048
     Dates: start: 20110519
  2. LEVOMEPROMAZINE [Suspect]
     Dosage: 10 TABLETS 25 MG
     Route: 048
     Dates: start: 20110519
  3. GLYBURIDE [Suspect]
     Dosage: 10 TABLETS 5 MG
     Route: 048
     Dates: start: 20110519
  4. GLYBURIDE [Suspect]
     Indication: DIABETES MELLITUS
     Route: 048
     Dates: start: 20050601
  5. LEVOMEPROMAZINE [Suspect]
     Indication: SCHIZOPHRENIA, PARANOID TYPE
     Route: 048
     Dates: start: 20040601
  6. SEROQUEL [Suspect]
     Indication: SCHIZOPHRENIA, PARANOID TYPE
     Route: 048
     Dates: start: 20040601, end: 20110519

REACTIONS (3)
  - SUICIDE ATTEMPT [None]
  - OVERDOSE [None]
  - MULTIPLE DRUG OVERDOSE INTENTIONAL [None]
